FAERS Safety Report 13622151 (Version 1)
Quarter: 2017Q2

REPORT INFORMATION
  Report Type: Spontaneous
  Country: US (occurrence: US)
  Receive Date: 20170607
  Receipt Date: 20170607
  Transmission Date: 20170830
  Serious: No
  Sender: FDA-Public Use
  Company Number: US-ROCHE-1890109

PATIENT
  Age: 39 Year
  Sex: Female

DRUGS (2)
  1. XELODA [Suspect]
     Active Substance: CAPECITABINE
     Indication: BREAST CANCER FEMALE
     Dosage: 4 TABLETS TWICE A DAILY
     Route: 048
     Dates: start: 20170118
  2. XELODA [Suspect]
     Active Substance: CAPECITABINE
     Dosage: 1 TABLET DAILY WITH 4 TO 500
     Route: 048

REACTIONS (2)
  - Abdominal pain [Unknown]
  - Fatigue [Unknown]

NARRATIVE: CASE EVENT DATE: 20170203
